FAERS Safety Report 16135629 (Version 5)
Quarter: 2021Q3

REPORT INFORMATION
  Report Type: Spontaneous
  Country: US (occurrence: US)
  Receive Date: 20190329
  Receipt Date: 20210730
  Transmission Date: 20211014
  Serious: Yes (Other)
  Sender: FDA-Public Use
  Company Number: US-PFIZER INC-2019131861

PATIENT
  Age: 69 Year
  Sex: Male

DRUGS (1)
  1. XELJANZ XR [Suspect]
     Active Substance: TOFACITINIB CITRATE
     Dosage: 11 MG, UNK
     Dates: start: 20180420

REACTIONS (7)
  - Skin cancer [Unknown]
  - Product dose omission in error [Unknown]
  - Arthropathy [Unknown]
  - Pain [Unknown]
  - Dizziness [Unknown]
  - Sensitivity to weather change [Unknown]
  - Arthralgia [Unknown]

NARRATIVE: CASE EVENT DATE: 2021
